FAERS Safety Report 8932014 (Version 1)
Quarter: 2012Q4

REPORT INFORMATION
  Report Type: 
  Country: US (occurrence: US)
  Receive Date: 20121128
  Receipt Date: 20121128
  Transmission Date: 20130627
  Serious: Yes (Congenital Anomaly, Other)
  Sender: FDA-Public Use
  Company Number: US-SHIRE-ALL1-2012-05742

PATIENT
  Sex: Female
  Weight: 3.22 kg

DRUGS (1)
  1. CARBATROL [Suspect]
     Indication: FOETAL EXPOSURE DURING PREGNANCY
     Dosage: UNK, Unknown
     Route: 015
     Dates: end: 20000726

REACTIONS (4)
  - Fibromatosis [Unknown]
  - Lipomeningocele [Unknown]
  - Spina bifida occulta [Unknown]
  - Foetal exposure during pregnancy [Recovered/Resolved]
